FAERS Safety Report 4590235-X (Version None)
Quarter: 2005Q1

REPORT INFORMATION
  Report Type: 
  Country: None (occurrence: None)
  Receive Date: 20050224
  Receipt Date: 20050210
  Transmission Date: 20050727
  Serious: Yes (Life-Threatening)
  Sender: FDA-Public Use
  Company Number: 200511541GDDC

PATIENT
  Sex: 0

DRUGS (1)
  1. CLEXANE [Suspect]

REACTIONS (1)
  - GASTRIC ULCER [None]
